FAERS Safety Report 5833168-0 (Version None)
Quarter: 2008Q3

REPORT INFORMATION
  Report Type: 
  Country: None (occurrence: None)
  Receive Date: 20080731
  Receipt Date: 20080721
  Transmission Date: 20090109
  Serious: Yes (Hospitalization)
  Sender: FDA-Public Use
  Company Number: 2008BI008834

PATIENT
  Age: 47 Year
  Sex: Female

DRUGS (11)
  1. AVONEX [Suspect]
     Indication: MULTIPLE SCLEROSIS
     Dosage: 30 UG; QW; IM, 30 UG; QW; IM
     Route: 030
     Dates: start: 19981001, end: 20030801
  2. AVONEX [Suspect]
     Indication: MULTIPLE SCLEROSIS
     Dosage: 30 UG; QW; IM, 30 UG; QW; IM
     Route: 030
     Dates: start: 20030801, end: 20080301
  3. PROVIGIL [Concomitant]
  4. DETROL [Concomitant]
  5. REQUIP [Concomitant]
  6. AVALIDE [Concomitant]
  7. ULTRAM [Concomitant]
  8. OMEPRAZOLE [Concomitant]
  9. LYRICA [Concomitant]
  10. NORVASC [Concomitant]
  11. MOBIC [Concomitant]

REACTIONS (3)
  - ANAEMIA [None]
  - MENORRHAGIA [None]
  - UTERINE HAEMORRHAGE [None]
